FAERS Safety Report 17432082 (Version 4)
Quarter: 2020Q1

REPORT INFORMATION
  Report Type: Spontaneous
  Country: CZ (occurrence: CZ)
  Receive Date: 20200218
  Receipt Date: 20200324
  Transmission Date: 20200409
  Serious: Yes (Death)
  Sender: FDA-Public Use
  Company Number: CZ-ALLERGAN-2007862US

PATIENT
  Sex: Male

DRUGS (12)
  1. QUETIAPINE. [Suspect]
     Active Substance: QUETIAPINE
     Indication: MENTAL DISORDER
     Dosage: 100 MG, BID
     Route: 048
  2. METAMIZOLE [Concomitant]
     Active Substance: METAMIZOLE
     Indication: PRODUCT USED FOR UNKNOWN INDICATION
     Dosage: UNK
     Route: 065
  3. HALOPERIDOL. [Concomitant]
     Active Substance: HALOPERIDOL
     Dosage: 5 GTT, BID
     Route: 065
  4. ESCITALOPRAM OXALATE - BP [Suspect]
     Active Substance: ESCITALOPRAM OXALATE
     Indication: DELIRIUM
     Dosage: 10 MILLIGRAM, QD
     Route: 048
  5. TIAPRIDAL                          /00435702/ [Suspect]
     Active Substance: TIAPRIDE HYDROCHLORIDE
     Indication: DELIRIUM
     Dosage: 200 MG, Q6HR
     Route: 065
  6. DANTROLENE. [Concomitant]
     Active Substance: DANTROLENE SODIUM
  7. AMANTADINE. [Concomitant]
     Active Substance: AMANTADINE HYDROCHLORIDE
  8. ESCITALOPRAM OXALATE - BP [Suspect]
     Active Substance: ESCITALOPRAM OXALATE
     Indication: MENTAL DISORDER
  9. KVENTIAX [Concomitant]
     Active Substance: QUETIAPINE FUMARATE
  10. VASOCARDIN [Concomitant]
     Active Substance: METOPROLOL
  11. TIAPRIDAL                          /00435702/ [Suspect]
     Active Substance: TIAPRIDE HYDROCHLORIDE
     Dosage: 100 MG, QD
     Route: 065
  12. HALOPERIDOL. [Concomitant]
     Active Substance: HALOPERIDOL
     Indication: AGGRESSION
     Dosage: 10 GTT, BID

REACTIONS (6)
  - Dehydration [Unknown]
  - Restlessness [Unknown]
  - Incontinence [Unknown]
  - Neuroleptic malignant syndrome [Fatal]
  - Product use in unapproved indication [Unknown]
  - Aggression [Recovered/Resolved]
